FAERS Safety Report 22304174 (Version 1)
Quarter: 2023Q2

REPORT INFORMATION
  Report Type: Spontaneous
  Country: CH (occurrence: CH)
  Receive Date: 20230510
  Receipt Date: 20230510
  Transmission Date: 20230722
  Serious: Yes (Death, Life-Threatening, Other)
  Sender: FDA-Public Use
  Company Number: CH-SUN PHARMACEUTICAL INDUSTRIES LTD-2023R1-387743

PATIENT
  Age: 68 Year
  Sex: Male

DRUGS (1)
  1. AMPHOTERICIN B [Suspect]
     Active Substance: AMPHOTERICIN B
     Indication: Haemophagocytic lymphohistiocytosis
     Dosage: 5 MILLIGRAM/KILOGRAM, DAILY
     Route: 065

REACTIONS (3)
  - Acute respiratory failure [Fatal]
  - Multiple organ dysfunction syndrome [Unknown]
  - Disease progression [Unknown]
